FAERS Safety Report 10420073 (Version 2)
Quarter: 2014Q3

REPORT INFORMATION
  Report Type: Spontaneous
  Country: TR (occurrence: None)
  Receive Date: 20140828
  Receipt Date: 20140905
  Transmission Date: 20150326
  Serious: Yes (Hospitalization, Other)
  Sender: FDA-Public Use
  Company Number: 201408-TR-001295

PATIENT
  Age: 67 Year
  Sex: Female

DRUGS (3)
  1. AMLODIPINE [Concomitant]
     Active Substance: AMLODIPINE BESYLATE
  2. SODIUM PHOSPHATE, DIBASIC [Suspect]
     Active Substance: SODIUM PHOSPHATE, DIBASIC
     Indication: BOWEL PREPARATION
     Route: 054
  3. METFORMIN [Concomitant]
     Active Substance: METFORMIN HYDROCHLORIDE

REACTIONS (11)
  - Anaemia [None]
  - Blood urea increased [None]
  - Renal tubular disorder [None]
  - Asthenia [None]
  - Nausea [None]
  - Vomiting [None]
  - Acute phosphate nephropathy [None]
  - Decreased appetite [None]
  - Haemodialysis [None]
  - Dysuria [None]
  - Blood creatinine increased [None]
